FAERS Safety Report 8046685-2 (Version None)
Quarter: 2012Q1

REPORT INFORMATION
  Report Type: 
  Country: None (occurrence: None)
  Receive Date: 20120116
  Receipt Date: 20120112
  Transmission Date: 20120608
  Serious: Yes (Death, Life-Threatening, Hospitalization)
  Sender: FDA-Public Use
  Company Number: RU-BRISTOL-MYERS SQUIBB COMPANY-15269426

PATIENT
  Age: 70 Year
  Sex: Female
  Weight: 75 kg

DRUGS (12)
  1. TROMCARDIN [Concomitant]
     Indication: CHOLECYSTITIS CHRONIC
     Dosage: 30ML 11MAY,40ML 15JUN2010
     Dates: start: 20100511, end: 20100615
  2. TROMCARDIN [Concomitant]
     Indication: DIARRHOEA
     Dosage: 30ML 11MAY,40ML 15JUN2010
     Dates: start: 20100511, end: 20100615
  3. PREDNISOLONE SODIUM SUCCINATE INJ [Concomitant]
     Indication: DIARRHOEA
     Dates: start: 20100511, end: 20100511
  4. PACLITAXEL [Suspect]
     Indication: NON-SMALL CELL LUNG CANCER
     Dosage: DAY 1 OF EACH 21DAY CYCLE
     Route: 042
     Dates: start: 20100420, end: 20100518
  5. IMODIUM [Concomitant]
     Indication: DIARRHOEA
     Dosage: 2DF=2 CAPS
     Dates: start: 20100422, end: 20100424
  6. ASCORBIC ACID [Concomitant]
     Indication: DIARRHOEA
     Dosage: 11MAY-11MAY2010;15-15JUN2010
     Dates: start: 20100511, end: 20100615
  7. AUGMENTIN '125' [Concomitant]
     Indication: CHOLECYSTITIS CHRONIC
     Dates: start: 20100615, end: 20100620
  8. DEXTROSE [Concomitant]
     Indication: CHOLECYSTITIS CHRONIC
     Dosage: 400ML 11MAY, 400 15JUN2010 (NO UNITS)
     Dates: start: 20100511, end: 20100615
  9. ASCORBIC ACID [Concomitant]
     Indication: CHOLECYSTITIS CHRONIC
     Dosage: 11MAY-11MAY2010;15-15JUN2010
     Dates: start: 20100511, end: 20100615
  10. ITRACONAZOLE [Concomitant]
     Indication: MUCOSAL INFLAMMATION
     Dates: start: 20100505, end: 20100510
  11. DEXTROSE [Concomitant]
     Indication: DIARRHOEA
     Dosage: 400ML 11MAY, 400 15JUN2010 (NO UNITS)
     Dates: start: 20100511, end: 20100615
  12. CARBOPLATIN [Suspect]
     Indication: NON-SMALL CELL LUNG CANCER
     Dosage: DAY 1 OF EACH 21DAY CYCLE 1DF: 6AUC
     Route: 042
     Dates: start: 20100420, end: 20100518

REACTIONS (4)
  - RENAL FAILURE [None]
  - BRAIN OEDEMA [None]
  - ACUTE RESPIRATORY FAILURE [None]
  - GASTROINTESTINAL HAEMORRHAGE [None]
